FAERS Safety Report 6645798-7 (Version None)
Quarter: 2010Q1

REPORT INFORMATION
  Report Type: 
  Country: None (occurrence: None)
  Receive Date: 20100323
  Receipt Date: 20100310
  Transmission Date: 20100710
  Serious: Yes (Hospitalization, Other)
  Sender: FDA-Public Use
  Company Number: US-ELI_LILLY_AND_COMPANY-US201003004575

PATIENT
  Sex: Female

DRUGS (3)
  1. BYETTA [Suspect]
     Indication: TYPE 2 DIABETES MELLITUS
     Dosage: 10 UG, UNK
     Route: 058
     Dates: start: 20060802, end: 20100224
  2. METFORMIN HCL [Concomitant]
     Indication: DIABETES MELLITUS
     Dates: start: 20050101
  3. LOVASTATIN [Concomitant]
     Indication: BLOOD CHOLESTEROL INCREASED
     Dosage: 40 MG, UNK
     Dates: start: 20060101

REACTIONS (3)
  - NEPHROLITHIASIS [None]
  - PANCREATITIS ACUTE [None]
  - RENAL FAILURE ACUTE [None]
